FAERS Safety Report 5751855-X (Version None)
Quarter: 2008Q2

REPORT INFORMATION
  Report Type: 
  Country: None (occurrence: None)
  Receive Date: 20080527
  Receipt Date: 20080512
  Transmission Date: 20081010
  Serious: Yes (Death, Other)
  Sender: FDA-Public Use
  Company Number: 2008-01340

PATIENT
  Age: 45 Year
  Sex: Male

DRUGS (2)
  1. VELCADE [Suspect]
     Indication: LYMPHOMA
     Dosage: 1.3 MG/M2
     Dates: start: 20080328, end: 20080328
  2. DOXIL [Concomitant]

REACTIONS (3)
  - ASCITES [None]
  - MENTAL STATUS CHANGES [None]
  - RENAL FAILURE [None]
